FAERS Safety Report 7435799-3 (Version None)
Quarter: 2011Q2

REPORT INFORMATION
  Report Type: 
  Country: None (occurrence: None)
  Receive Date: 20110418
  Receipt Date: 20110405
  Transmission Date: 20111010
  Serious: Yes (Hospitalization, Other)
  Sender: FDA-Public Use
  Company Number: 030674

PATIENT
  Sex: Female

DRUGS (1)
  1. CIMZIA [Suspect]
     Dosage: SINGLE DOSE: SUBCUTANEOUS
     Route: 058
     Dates: start: 20110101, end: 20110101

REACTIONS (1)
  - DERMATITIS ALLERGIC [None]
